FAERS Safety Report 9697372 (Version 1)
Quarter: 2013Q4

REPORT INFORMATION
  Report Type: Spontaneous
  Country: US (occurrence: US)
  Receive Date: 20131120
  Receipt Date: 20131120
  Transmission Date: 20140711
  Serious: Yes (Other)
  Sender: FDA-Public Use
  Company Number: US-MERCK-1311USA002629

PATIENT
  Age: 45 Year
  Sex: Male
  Weight: 92.97 kg

DRUGS (2)
  1. PEGINTRON [Suspect]
     Indication: HEPATITIS C
     Dosage: UNK
     Dates: start: 201005
  2. TRAMADOL HYDROCHLORIDE [Concomitant]
     Indication: PAIN
     Dosage: UNK, PRN

REACTIONS (8)
  - Aphasia [Unknown]
  - Psoriatic arthropathy [Unknown]
  - Psoriasis [Unknown]
  - Daydreaming [Unknown]
  - Speech disorder [Unknown]
  - Paraesthesia [Unknown]
  - Skin discolouration [Unknown]
  - Pruritus [Unknown]
